FAERS Safety Report 6208898-1 (Version None)
Quarter: 2009Q2

REPORT INFORMATION
  Report Type: 
  Country: None (occurrence: None)
  Receive Date: 20090529
  Receipt Date: 20090520
  Transmission Date: 20091009
  Serious: Yes (Other)
  Sender: FDA-Public Use
  Company Number: B0576176A

PATIENT
  Age: 29 Year
  Sex: Female

DRUGS (4)
  1. SERETIDE FORTE [Suspect]
     Route: 055
  2. AERIUS [Concomitant]
  3. SULTANOL [Concomitant]
  4. MULTI-VITAMIN [Concomitant]

REACTIONS (3)
  - DIZZINESS [None]
  - PARAESTHESIA [None]
  - VERTIGO [None]
